FAERS Safety Report 10480325 (Version 1)
Quarter: 2014Q3

REPORT INFORMATION
  Report Type: Spontaneous
  Country: US (occurrence: US)
  Receive Date: 20140929
  Receipt Date: 20140929
  Transmission Date: 20150326
  Serious: Yes (Disabling, Other)
  Sender: FDA-Public Use
  Company Number: US-ROCHE-1466189

PATIENT
  Age: 74 Year
  Sex: Female

DRUGS (7)
  1. COLACE [Concomitant]
     Active Substance: DOCUSATE SODIUM
  2. KLONOPIN [Suspect]
     Active Substance: CLONAZEPAM
     Dosage: HALF A PILL
     Route: 048
     Dates: start: 2010
  3. LEXAPRO [Suspect]
     Active Substance: ESCITALOPRAM OXALATE
     Indication: PRODUCT USED FOR UNKNOWN INDICATION
     Route: 065
  4. MIRALAX [Concomitant]
     Active Substance: POLYETHYLENE GLYCOL 3350
  5. KLONOPIN [Suspect]
     Active Substance: CLONAZEPAM
     Indication: ANXIETY
     Dosage: 1 PILL
     Route: 048
     Dates: start: 2010
  6. NEURONTIN (UNITED STATES) [Concomitant]
     Indication: PAIN
     Route: 065
  7. SENNA [Concomitant]
     Active Substance: SENNA LEAF\SENNOSIDES\SENNOSIDES A AND B

REACTIONS (9)
  - Sciatica [Unknown]
  - Convulsion [Recovered/Resolved]
  - Blood pressure increased [Unknown]
  - Neuropathy peripheral [Unknown]
  - Bladder prolapse [Not Recovered/Not Resolved]
  - Hypoaesthesia [Not Recovered/Not Resolved]
  - Drug ineffective [Unknown]
  - Anxiety [Unknown]
  - Drug dependence [Unknown]

NARRATIVE: CASE EVENT DATE: 201407
